FAERS Safety Report 6340925-3 (Version None)
Quarter: 2009Q3

REPORT INFORMATION
  Report Type: 
  Country: None (occurrence: None)
  Receive Date: 20090902
  Receipt Date: 20090902
  Transmission Date: 20100115
  Serious: Yes (Death)
  Sender: FDA-Public Use
  Company Number: None

PATIENT
  Age: 40 Year
  Sex: Female

DRUGS (13)
  1. CERTOLIZUMAB PEGOL [Suspect]
     Indication: CONVULSION
     Dosage: NI SC
     Route: 058
     Dates: start: 20090518, end: 20090518
  2. CERTOLIZUMAB PEGOL [Suspect]
     Indication: SUBCUTANEOUS EMPHYSEMA
     Dosage: NI SC
     Route: 058
     Dates: start: 20090518, end: 20090518
  3. CERTOLIZUMAB PEGOL [Suspect]
     Indication: CONVULSION
     Dosage: NI SC
     Route: 058
     Dates: start: 20090518, end: 20090518
  4. CERTOLIZUMAB PEGOL [Suspect]
     Indication: SUBCUTANEOUS EMPHYSEMA
     Dosage: NI SC
     Route: 058
     Dates: start: 20090518, end: 20090518
  5. METRONIDAZOL [Concomitant]
  6. OXYCODONE [Concomitant]
  7. PAROXETINE HCL [Concomitant]
  8. POTASSIUM CHLORIDE [Concomitant]
  9. PREDNISONE TAB [Concomitant]
  10. PANTOPRAZOLE SODIUM [Concomitant]
  11. ALPRAZOLAM [Concomitant]
  12. ACETAMINOPHEN [Concomitant]
  13. METHOTREXATE [Concomitant]

REACTIONS (36)
  - ABDOMINAL DISTENSION [None]
  - ABDOMINAL TENDERNESS [None]
  - ANASTOMOTIC LEAK [None]
  - ASCITES [None]
  - ATELECTASIS [None]
  - CARDIAC FAILURE CONGESTIVE [None]
  - CARDIO-RESPIRATORY ARREST [None]
  - CARDIOVASCULAR DISORDER [None]
  - CONVULSION [None]
  - CYANOSIS [None]
  - DIALYSIS [None]
  - FLUID OVERLOAD [None]
  - GASTROINTESTINAL DISORDER [None]
  - GENERALISED OEDEMA [None]
  - HYPOTENSION [None]
  - INTESTINAL ISCHAEMIA [None]
  - LARGE INTESTINE PERFORATION [None]
  - LUNG INFILTRATION [None]
  - NO THERAPEUTIC RESPONSE [None]
  - OEDEMA [None]
  - PLEURAL EFFUSION [None]
  - PROCEDURAL PAIN [None]
  - PULMONARY EMBOLISM [None]
  - PULMONARY OEDEMA [None]
  - RENAL FAILURE [None]
  - RESPIRATORY FAILURE [None]
  - RETROPERITONEAL HAEMORRHAGE [None]
  - SEPSIS [None]
  - SHOCK [None]
  - SMALL INTESTINAL HAEMORRHAGE [None]
  - SPLENIC INFARCTION [None]
  - SUBCUTANEOUS EMPHYSEMA [None]
  - TACHYCARDIA [None]
  - TACHYPNOEA [None]
  - UTERINE DISORDER [None]
  - WOUND DEHISCENCE [None]
